FAERS Safety Report 6334931-2 (Version None)
Quarter: 2009Q3

REPORT INFORMATION
  Report Type: 
  Country: None (occurrence: None)
  Receive Date: 20090831
  Receipt Date: 20090827
  Transmission Date: 20100115
  Serious: Yes (Hospitalization)
  Sender: FDA-Public Use
  Company Number: US-BRISTOL-MYERS SQUIBB COMPANY-14756704

PATIENT
  Sex: Female

DRUGS (2)
  1. CYTOXAN [Suspect]
     Dosage: SOLUTION OF INJECTION
     Route: 042
  2. TAXOTERE [Suspect]
     Dosage: CYC IV; SOLUTION FOR INJECTION
     Route: 042

REACTIONS (3)
  - DIARRHOEA [None]
  - HAEMATURIA [None]
  - STOMATITIS [None]
